FAERS Safety Report 5220975-0 (Version None)
Quarter: 2007Q1

REPORT INFORMATION
  Report Type: 
  Country: None (occurrence: None)
  Receive Date: 20070123
  Receipt Date: 20070109
  Transmission Date: 20070707
  Serious: Yes (Hospitalization, Other)
  Sender: FDA-Public Use
  Company Number: 2007RR-05148

PATIENT
  Age: 43 Year

DRUGS (10)
  1. CIPROFLOXACIN [Suspect]
     Dosage: 400 MG, BID, INTRAVENOUS
     Route: 042
     Dates: start: 20061211, end: 20061214
  2. CYCLIZINE [Concomitant]
  3. DICLOFENAC SODIUM [Concomitant]
  4. FERROUS SULPHATE (FERROUS SULFATE) [Concomitant]
  5. FRAGMIN [Concomitant]
  6. METRONIDAZOLE [Concomitant]
  7. MORPHINE [Concomitant]
  8. OMEPRAZOLE [Concomitant]
  9. ONDANSETRON HCL [Concomitant]
  10. ACETAMINOPHEN [Concomitant]

REACTIONS (5)
  - DEHYDRATION [None]
  - DIZZINESS [None]
  - NAUSEA [None]
  - TINNITUS [None]
  - VOMITING [None]
